FAERS Safety Report 8696354 (Version 3)
Quarter: 2012Q4

REPORT INFORMATION
  Report Type: 
  Country: US (occurrence: US)
  Receive Date: 20120801
  Receipt Date: 20121107
  Transmission Date: 20130627
  Serious: No
  Sender: FDA-Public Use
  Company Number: US-PFIZER INC-2012182885

PATIENT
  Age: 59 Year
  Sex: Female
  Weight: 47.62 kg

DRUGS (5)
  1. PREMARIN VAGINAL CREAM [Suspect]
     Indication: VAGINAL DRYNESS
     Dosage: UNK, daily
     Route: 067
     Dates: start: 20120530, end: 20120607
  2. PREMARIN VAGINAL CREAM [Suspect]
     Dosage: UNK, 1x/day
     Route: 067
     Dates: start: 201206, end: 201206
  3. PREMARIN VAGINAL CREAM [Suspect]
     Dosage: UNK
     Route: 067
     Dates: start: 20120723
  4. PREMARIN VAGINAL CREAM [Suspect]
     Dosage: UNK, 1x/day
     Route: 067
     Dates: end: 20120727
  5. PREMARIN VAGINAL CREAM [Suspect]

REACTIONS (3)
  - Hypersensitivity [Not Recovered/Not Resolved]
  - Vulvovaginal swelling [Not Recovered/Not Resolved]
  - Swelling [Recovered/Resolved]
